FAERS Safety Report 7575193-8 (Version None)
Quarter: 2011Q2

REPORT INFORMATION
  Report Type: 
  Country: None (occurrence: None)
  Receive Date: 20110627
  Receipt Date: 20110614
  Transmission Date: 20111010
  Serious: Yes (Other)
  Sender: FDA-Public Use
  Company Number: US-ELI_LILLY_AND_COMPANY-US201101006450

PATIENT
  Sex: Female
  Weight: 79.365 kg

DRUGS (20)
  1. FORTEO [Suspect]
     Dosage: 20 UG, QD
     Route: 058
  2. GLUCOSAMINE SULFATE [Concomitant]
     Dosage: 3 DF, AS DIRECTED
     Route: 048
  3. CRESTOR [Concomitant]
     Dosage: 10 MG, QD
     Route: 048
  4. MULTI-VITAMIN [Concomitant]
     Dosage: 1 DF, QD
     Route: 048
  5. VENTOLIN HFA [Concomitant]
     Dosage: 1 DF, PRN
     Route: 055
  6. CALTRATE PLUS [Concomitant]
     Dosage: 1 DF, QD
     Route: 048
  7. CO Q-10 [Concomitant]
     Dosage: 200 MG, QD
     Route: 048
  8. LORAZEPAM [Concomitant]
     Indication: INSOMNIA
     Dosage: 1 DF, Q4H OR QHS PRN
     Route: 048
  9. LEVOXYL [Concomitant]
     Dosage: 1 DF, QD
     Route: 048
  10. OXYCODONE HCL [Concomitant]
     Indication: PAIN
     Dosage: 1 DF, Q3-4H PRN
     Route: 048
  11. FORTEO [Suspect]
     Dosage: 20 UG, QD
     Route: 058
  12. NORVASC [Concomitant]
     Dosage: 1 DF, QD
     Route: 048
  13. CALCIUM CARBONATE [Concomitant]
  14. VITAMIN D [Concomitant]
  15. PROCHLORPERAZINE MALEATE [Concomitant]
     Indication: NAUSEA
     Dosage: 1 DF, Q6H PRN
     Route: 048
  16. ASCORBIC ACID [Concomitant]
     Dosage: 1 DF, QD
     Route: 048
  17. FORTEO [Suspect]
     Indication: OSTEOPOROSIS
     Dosage: 20 UG, DAILY (1/D)
     Route: 058
     Dates: start: 20101021
  18. VICODIN [Concomitant]
     Indication: PAIN
     Dosage: 1 DF, Q4H PRN
     Route: 048
  19. ASPIRIN [Concomitant]
     Dosage: 81 MG, QD
     Route: 048
  20. VITAMIN D2 [Concomitant]
     Dosage: 1 DF, Q7D
     Route: 048

REACTIONS (1)
  - NON-SMALL CELL LUNG CANCER STAGE III [None]
